FAERS Safety Report 5801253-5 (Version None)
Quarter: 2008Q3

REPORT INFORMATION
  Report Type: 
  Country: None (occurrence: None)
  Receive Date: 20080707
  Receipt Date: 20080624
  Transmission Date: 20090109
  Serious: Yes (Hospitalization)
  Sender: FDA-Public Use
  Company Number: JP-JNJFOC-20080700318

PATIENT
  Age: 62 Year
  Sex: Male

DRUGS (4)
  1. LEVOFLOXACIN [Suspect]
     Indication: LYMPHADENITIS BACTERIAL
     Route: 048
  2. LOXONIN [Concomitant]
     Indication: INFECTION PROPHYLAXIS
  3. DASEN [Concomitant]
     Indication: INFECTION PROPHYLAXIS
  4. CABAGIN [Concomitant]
     Indication: INFECTION PROPHYLAXIS

REACTIONS (1)
  - ACQUIRED HAEMOPHILIA [None]
